FAERS Safety Report 24182999 (Version 1)
Quarter: 2024Q3

REPORT INFORMATION
  Report Type: Spontaneous
  Country: ES (occurrence: ES)
  Receive Date: 20240807
  Receipt Date: 20240807
  Transmission Date: 20241016
  Serious: Yes (Other)
  Sender: ROCHE
  Company Number: None

PATIENT
  Age: 47 Year
  Sex: Female
  Weight: 56 kg

DRUGS (8)
  1. TOCILIZUMAB [Suspect]
     Active Substance: TOCILIZUMAB
     Indication: Endocrine ophthalmopathy
     Route: 042
     Dates: start: 20240415, end: 20240610
  2. CHOLECALCIFEROL [Concomitant]
     Active Substance: CHOLECALCIFEROL
     Route: 048
     Dates: start: 20240119
  3. CYANOCOBALAMIN [Concomitant]
     Active Substance: CYANOCOBALAMIN
     Dates: start: 20240119
  4. METHIMAZOLE [Concomitant]
     Active Substance: METHIMAZOLE
     Route: 048
     Dates: start: 20240308, end: 20240607
  5. TRYPTIZOL [Concomitant]
     Active Substance: AMITRIPTYLINE HYDROCHLORIDE
     Route: 048
     Dates: start: 20230421
  6. ESOMEPRAZOLE [Concomitant]
     Active Substance: ESOMEPRAZOLE
     Route: 048
     Dates: start: 20220910
  7. FERROUS SULFATE [Concomitant]
     Active Substance: FERROUS SULFATE
     Route: 048
     Dates: start: 20240119
  8. LAURIMIC [Concomitant]
     Route: 067
     Dates: start: 20230904

REACTIONS (6)
  - Nasal herpes [Not Recovered/Not Resolved]
  - Diarrhoea [Recovered/Resolved]
  - Arthralgia [Not Recovered/Not Resolved]
  - Oral herpes [Recovered/Resolved]
  - Dry skin [Not Recovered/Not Resolved]
  - Genital herpes [Not Recovered/Not Resolved]

NARRATIVE: CASE EVENT DATE: 20240423
